FAERS Safety Report 9221968 (Version 1)
Quarter: 2013Q1

REPORT INFORMATION
  Report Type: Spontaneous
  Country: US (occurrence: None)
  Receive Date: 20120910
  Receipt Date: 20120910
  Transmission Date: 20140127
  Serious: No
  Sender: FDA-Public Use
  Company Number: 1206USA03521

PATIENT
  Age: 63 Year
  Sex: Female

DRUGS (1)
  1. ZIOPTAN ( TAFLUPROST) EYE DROPS, SOLUTION [Suspect]
     Route: 047

REACTIONS (1)
  - Eye irritation [None]
